FAERS Safety Report 19414815 (Version 1)
Quarter: 2021Q2

REPORT INFORMATION
  Report Type: Report from Study
  Country: KR (occurrence: KR)
  Receive Date: 20210615
  Receipt Date: 20210615
  Transmission Date: 20210717
  Serious: Yes (Hospitalization, Other)
  Sender: FDA-Public Use
  Company Number: KR-SUN PHARMACEUTICAL INDUSTRIES LTD-2021RR-300477

PATIENT

DRUGS (2)
  1. OCTREOTIDE. [Suspect]
     Active Substance: OCTREOTIDE
     Dosage: UNK, AT 4?WEEK INTERVALS
     Route: 058
  2. OCTREOTIDE. [Suspect]
     Active Substance: OCTREOTIDE
     Indication: LYMPHANGIECTASIA INTESTINAL
     Dosage: UNK, TWICE A DAY; INDUCTION THERAPY
     Route: 058

REACTIONS (1)
  - Condition aggravated [Unknown]
